FAERS Safety Report 10733598 (Version 1)
Quarter: 2015Q1

REPORT INFORMATION
  Report Type: Spontaneous
  Country: US (occurrence: US)
  Receive Date: 20150123
  Receipt Date: 20150123
  Transmission Date: 20150721
  Serious: Yes (Other)
  Sender: FDA-Public Use
  Company Number: US-ASTRAZENECA-2015SE06938

PATIENT
  Age: 66 Year
  Sex: Female

DRUGS (4)
  1. VITAMIN AND MINERAL SUPPLEMENTS [Concomitant]
  2. STATIN [Concomitant]
     Active Substance: UNSPECIFIED INGREDIENT
     Indication: HYPERCHOLESTEROLAEMIA
  3. NEXIUM [Suspect]
     Active Substance: ESOMEPRAZOLE MAGNESIUM
     Indication: GASTROOESOPHAGEAL REFLUX DISEASE
     Route: 048
  4. ANTIDEPRESSANT [Concomitant]
     Active Substance: UNSPECIFIED INGREDIENT

REACTIONS (2)
  - Megacolon [Recovered/Resolved]
  - Clostridium difficile colitis [Recovered/Resolved]
